FAERS Safety Report 16178909 (Version 1)
Quarter: 2019Q2

REPORT INFORMATION
  Report Type: Spontaneous
  Country: BR (occurrence: BR)
  Receive Date: 20190410
  Receipt Date: 20190410
  Transmission Date: 20190711
  Serious: Yes (Other)
  Sender: FDA-Public Use
  Company Number: BR-BAYER-2019-067881

PATIENT
  Age: 73 Year
  Sex: Female

DRUGS (3)
  1. SELOZOK [Concomitant]
     Active Substance: METOPROLOL SUCCINATE
     Indication: HYPERTENSION
     Dosage: 1 DF, BID
     Route: 048
     Dates: start: 2015
  2. ETANERCEPT [Concomitant]
     Active Substance: ETANERCEPT
     Indication: RHEUMATOID ARTHRITIS
     Dosage: 1 DF, OW
     Route: 058
  3. ASPIRINA PREVENT 100 MG [Suspect]
     Active Substance: ASPIRIN
     Indication: CARDIAC ABLATION
     Dosage: 1 DF, QD
     Dates: start: 2004

REACTIONS (2)
  - Thrombosis [Recovered/Resolved]
  - Psoriasis [Not Recovered/Not Resolved]

NARRATIVE: CASE EVENT DATE: 201903
